FAERS Safety Report 10222695 (Version 1)
Quarter: 2014Q2

REPORT INFORMATION
  Report Type: Spontaneous
  Country: DE (occurrence: DE)
  Receive Date: 20140606
  Receipt Date: 20140606
  Transmission Date: 20141212
  Serious: Yes (Hospitalization)
  Sender: FDA-Public Use
  Company Number: DE-TEVA-484710GER

PATIENT
  Age: 73 Year
  Sex: Male

DRUGS (4)
  1. OLANZAPIN [Suspect]
     Route: 048
     Dates: start: 201308, end: 20140114
  2. ERGENYL [Concomitant]
     Route: 048
     Dates: start: 2006
  3. RAMIPRIL [Concomitant]
     Route: 048
     Dates: start: 2011
  4. HYDROCHLOROTHIAZID [Concomitant]
     Route: 048
     Dates: start: 2011

REACTIONS (4)
  - Parkinsonism [Unknown]
  - Camptocormia [Recovered/Resolved]
  - Parkinsonian gait [Unknown]
  - Muscle rigidity [Unknown]
